FAERS Safety Report 14520525 (Version 1)
Quarter: 2018Q1

REPORT INFORMATION
  Report Type: Spontaneous
  Country: US (occurrence: US)
  Receive Date: 20180212
  Receipt Date: 20180212
  Transmission Date: 20180509
  Serious: No
  Sender: FDA-Public Use
  Company Number: US-PFIZER INC-2018012274

PATIENT
  Age: 88 Year
  Sex: Female
  Weight: 48 kg

DRUGS (1)
  1. IBRANCE [Suspect]
     Active Substance: PALBOCICLIB
     Indication: BREAST CANCER FEMALE
     Dosage: 125 MG, CYCLIC (ONE CAPSULE DAILY FOR 21 DAYS AND STOP FOR 7 DAY)
     Dates: start: 20180207

REACTIONS (2)
  - Vomiting [Not Recovered/Not Resolved]
  - Hyperchlorhydria [Recovering/Resolving]

NARRATIVE: CASE EVENT DATE: 20180207
